FAERS Safety Report 23626620 (Version 1)
Quarter: 2024Q1

REPORT INFORMATION
  Report Type: Spontaneous
  Country: US (occurrence: None)
  Receive Date: 20240312
  Receipt Date: 20240312
  Transmission Date: 20240410
  Serious: Yes (Other)
  Sender: FDA-Public Use
  Company Number: None

PATIENT
  Age: 35 Year
  Sex: Male
  Weight: 122 kg

DRUGS (5)
  1. HALOPERIDOL [Suspect]
     Active Substance: HALOPERIDOL
     Indication: Aggression
     Dosage: OTHER FREQUENCY : Q 6 HOURS PRN;?
     Route: 048
     Dates: start: 20240307, end: 20240307
  2. HALOPERIDOL [Suspect]
     Active Substance: HALOPERIDOL
     Indication: Psychotic disorder
  3. Depakote EC 500 mg TID [Concomitant]
     Dates: start: 20240304
  4. Seroquel 100 mg BID [Concomitant]
     Dates: start: 20240304
  5. Multivitamin daily [Concomitant]
     Dates: start: 20240304

REACTIONS (1)
  - Trismus [None]

NARRATIVE: CASE EVENT DATE: 20240307
